FAERS Safety Report 4869806-9 (Version None)
Quarter: 2005Q4

REPORT INFORMATION
  Report Type: 
  Country: None (occurrence: None)
  Receive Date: 20051223
  Receipt Date: 20051212
  Transmission Date: 20060501
  Serious: Yes (Other)
  Sender: FDA-Public Use
  Company Number: S05-USA-05238-01

PATIENT
  Age: 57 Year
  Sex: Male

DRUGS (3)
  1. LEXAPRO [Suspect]
     Dates: start: 20050501
  2. IBUPROFEN [Concomitant]
  3. SUFAFED (PSEUDOEPHEDRINE HYDROCHLORIDE) [Concomitant]

REACTIONS (1)
  - LUPUS-LIKE SYNDROME [None]
